FAERS Safety Report 4776586-4 (Version None)
Quarter: 2005Q3

REPORT INFORMATION
  Report Type: 
  Country: None (occurrence: None)
  Receive Date: 20050915
  Receipt Date: 20050901
  Transmission Date: 20060218
  Serious: Yes (Disabling)
  Sender: FDA-Public Use
  Company Number: GBR-2005-0001841

PATIENT
  Age: 71 Year
  Sex: Male

DRUGS (16)
  1. OXYCONTIN [Suspect]
     Indication: PAIN
     Dosage: SEE IMAGE
     Route: 048
  2. OXYCODONE HCL [Suspect]
     Indication: PAIN
     Dosage: SEE IMAGE
     Route: 048
  3. GABAPENTIN [Suspect]
     Indication: NEUROPATHIC PAIN
     Dosage: 700 MG, TID, ORAL
     Route: 048
  4. DIAZEPAM [Concomitant]
  5. ATENOLOL [Concomitant]
  6. PERINDOPRIL (PERINDOPRIL) [Concomitant]
  7. ISOSORBIDE MONONITRATE [Concomitant]
  8. ATORVASTATIN CALCIUM [Concomitant]
  9. AMITRIPTYLINE HCL [Concomitant]
  10. FUROSEMIDE [Concomitant]
  11. OMEPRAZOLE [Concomitant]
  12. PARACETAMOL [Concomitant]
  13. ASPIRIN [Concomitant]
  14. CODEINE [Concomitant]
  15. NICORANDIL (NICORANDIL) [Concomitant]
  16. SENNA (SENNA) [Concomitant]

REACTIONS (6)
  - DISEASE PROGRESSION [None]
  - GENERAL PHYSICAL HEALTH DETERIORATION [None]
  - HAEMORRHAGE [None]
  - MOBILITY DECREASED [None]
  - MUSCLE RIGIDITY [None]
  - OEDEMA PERIPHERAL [None]
